FAERS Safety Report 4410512-2 (Version None)
Quarter: 2004Q3

REPORT INFORMATION
  Report Type: 
  Country: None (occurrence: None)
  Receive Date: 20040728
  Receipt Date: 20040728
  Transmission Date: 20050211
  Serious: No
  Sender: FDA-Public Use
  Company Number: None

PATIENT
  Age: 53 Year
  Sex: Male
  Weight: 72.8 kg

DRUGS (3)
  1. FLUOROURACIL [Suspect]
     Indication: PANCREATIC CARCINOMA
     Dosage: 340 MG/DAY CONT IV
     Route: 042
     Dates: start: 20040615, end: 20040709
  2. FLUOROURACIL [Suspect]
     Indication: PANCREATIC CARCINOMA
     Dosage: 340 MG/DAY CONT IV
     Route: 042
     Dates: start: 20040702, end: 20040721
  3. RADIATION THERAPY [Concomitant]

REACTIONS (3)
  - ASTHENIA [None]
  - NAUSEA [None]
  - VOMITING [None]
